FAERS Safety Report 6072836-5 (Version None)
Quarter: 2009Q1

REPORT INFORMATION
  Report Type: 
  Country: None (occurrence: None)
  Receive Date: 20090210
  Receipt Date: 20090202
  Transmission Date: 20090719
  Serious: Yes (Other)
  Sender: FDA-Public Use
  Company Number: CA-MERCK-0809CAN00105

PATIENT
  Age: 63 Year
  Sex: Female
  Weight: 58 kg

DRUGS (7)
  1. FOSAMAX [Suspect]
     Indication: OSTEOPOROSIS
     Route: 048
     Dates: start: 20050513, end: 20080101
  2. PRAVASTATIN SODIUM [Concomitant]
     Route: 065
  3. OMEPRAZOLE [Concomitant]
     Route: 065
  4. CALCIUM (UNSPECIFIED) AND VITAMIN D (UNSPECIFIED) [Concomitant]
     Route: 065
  5. ESTROGENS, CONJUGATED [Concomitant]
     Route: 065
  6. MEDROXYPROGESTERONE ACETATE [Concomitant]
     Route: 065
  7. NITROGLYCERIN [Concomitant]
     Route: 060

REACTIONS (2)
  - BLINDNESS UNILATERAL [None]
  - EYE PAIN [None]
